FAERS Safety Report 5389136-9 (Version None)
Quarter: 2007Q3

REPORT INFORMATION
  Report Type: 
  Country: None (occurrence: None)
  Receive Date: 20070717
  Receipt Date: 20070706
  Transmission Date: 20080115
  Serious: Yes (Hospitalization, Disabling)
  Sender: FDA-Public Use
  Company Number: FR-AMGEN-UK209714

PATIENT
  Sex: Female
  Weight: 47 kg

DRUGS (9)
  1. KEPIVANCE [Suspect]
     Indication: MUCOSAL INFLAMMATION
     Route: 042
     Dates: start: 20061204
  2. MELPHALAN [Suspect]
     Route: 065
     Dates: start: 20061212
  3. BUSULFAN [Suspect]
     Dates: start: 20061208, end: 20061210
  4. ALKERAN [Concomitant]
     Route: 065
  5. LUTENYL [Concomitant]
     Route: 048
  6. OGAST [Concomitant]
     Route: 048
  7. LEXOMIL [Concomitant]
     Route: 048
  8. ZOLPIDEM TARTRATE [Concomitant]
     Route: 048
  9. BOANMYCIN [Concomitant]
     Route: 065
     Dates: start: 20061201

REACTIONS (17)
  - ANAEMIA [None]
  - ANOREXIA [None]
  - DIARRHOEA [None]
  - DYSPHAGIA [None]
  - GAIT DISTURBANCE [None]
  - GAMMA-GLUTAMYLTRANSFERASE INCREASED [None]
  - GENERAL PHYSICAL HEALTH DETERIORATION [None]
  - HYPOKALAEMIA [None]
  - LEUKOPENIA [None]
  - MALNUTRITION [None]
  - NEUTROPENIA [None]
  - OESOPHAGITIS [None]
  - SALIVARY HYPERSECRETION [None]
  - SKIN EXFOLIATION [None]
  - SKIN HYPERPIGMENTATION [None]
  - THROMBOCYTOPENIA [None]
  - VOMITING [None]
